FAERS Safety Report 17785405 (Version 3)
Quarter: 2020Q2

REPORT INFORMATION
  Report Type: Report from Study
  Country: US (occurrence: US)
  Receive Date: 20200514
  Receipt Date: 20200611
  Transmission Date: 20200714
  Serious: Yes (Death, Hospitalization, Other)
  Sender: FDA-Public Use
  Company Number: US-SA-2020SA119798

PATIENT

DRUGS (12)
  1. VASOPRESSIN. [Concomitant]
     Active Substance: VASOPRESSIN
     Indication: HYPOPITUITARISM
  2. AMIODARONE [Concomitant]
     Active Substance: AMIODARONE
     Indication: ARRHYTHMIA
     Dosage: 150 MG BOLUS THEN 1MG/MIN TITRATED TO 0.5 MG/MIN
     Route: 042
     Dates: start: 20200422, end: 20200423
  3. DOXYCYCLINE. [Concomitant]
     Active Substance: DOXYCYCLINE
     Indication: ANTIBIOTIC THERAPY
     Dosage: 100 MG, BID
     Route: 050
     Dates: start: 20200421, end: 20200423
  4. METHYLPREDNISOLONE. [Concomitant]
     Active Substance: METHYLPREDNISOLONE
     Indication: COVID-19
     Dosage: 40 MG, BID
     Route: 042
     Dates: start: 20200418, end: 20200422
  5. VANCOMYCIN [Concomitant]
     Active Substance: VANCOMYCIN
     Indication: ANTIBIOTIC THERAPY
     Dosage: 1250 MG, QD
     Route: 042
     Dates: start: 20200417, end: 20200421
  6. PIPERACILLIN TAZOBACTAM PA [Concomitant]
     Active Substance: PIPERACILLIN SODIUM\TAZOBACTAM SODIUM
     Indication: ANTIBIOTIC THERAPY
     Dosage: 4.5 MG, Q8H
     Route: 042
     Dates: start: 20200417, end: 20200423
  7. SARILUMAB [Suspect]
     Active Substance: SARILUMAB
     Indication: COVID-19
     Dosage: REGN MAB1 400 MG, 1X
     Route: 042
     Dates: start: 20200423, end: 20200423
  8. AMIODARONE [Concomitant]
     Active Substance: AMIODARONE
     Indication: ARRHYTHMIA
  9. VASOPRESSIN. [Concomitant]
     Active Substance: VASOPRESSIN
     Indication: HYPOPITUITARISM
     Dosage: 2.4 U/HOUR, CONTINUOUS INFUSION
     Route: 042
     Dates: start: 20200420
  10. PHENYLEPHRINE [Concomitant]
     Active Substance: PHENYLEPHRINE HYDROCHLORIDE
     Indication: VASOPRESSIVE THERAPY
     Dosage: 10-400MCG/MIN, CONTINUOUS INFUSION
     Route: 042
     Dates: start: 20200419, end: 20200420
  11. SARILUMAB [Suspect]
     Active Substance: SARILUMAB
     Dosage: 1X,REGN88 OR PLACEBO 200 MG OR 400 MG, SINGLE DOSE OR MULTIPLE DOSES FOR 1 HOUR
     Route: 042
     Dates: start: 20200424, end: 20200424
  12. NOREPINEPHRINE. [Concomitant]
     Active Substance: NOREPINEPHRINE
     Indication: BLOOD ANTIDIURETIC HORMONE
     Dosage: 1-40 MG/MIN, CONTINUOUS INFUSION
     Route: 042
     Dates: start: 20200420

REACTIONS (3)
  - Alanine aminotransferase increased [Recovered/Resolved]
  - Aspartate aminotransferase increased [Recovered/Resolved]
  - Acute respiratory distress syndrome [Fatal]

NARRATIVE: CASE EVENT DATE: 20200427
